FAERS Safety Report 7164295-6 (Version None)
Quarter: 2010Q4

REPORT INFORMATION
  Report Type: 
  Country: None (occurrence: None)
  Receive Date: 20101215
  Receipt Date: 20101206
  Transmission Date: 20110411
  Serious: Yes (Other)
  Sender: FDA-Public Use
  Company Number: PHHY2010FR65212

PATIENT
  Sex: Male
  Weight: 63 kg

DRUGS (2)
  1. RASILEZ [Suspect]
     Indication: HYPERTENSION
     Dosage: 300 MG, QD
     Route: 048
     Dates: start: 20100518, end: 20100927
  2. BRICANYL [Concomitant]
     Indication: BRONCHITIS CHRONIC
     Dosage: 500 MG, BID
     Dates: start: 20100501

REACTIONS (4)
  - GUTTATE PSORIASIS [None]
  - RASH [None]
  - RASH ERYTHEMATOUS [None]
  - TOXIC SKIN ERUPTION [None]
